FAERS Safety Report 13735528 (Version 1)
Quarter: 2017Q3

REPORT INFORMATION
  Report Type: Spontaneous
  Country: US (occurrence: US)
  Receive Date: 20170709
  Receipt Date: 20170709
  Transmission Date: 20171127
  Serious: Yes (Other)
  Sender: FDA-Public Use
  Company Number: None

PATIENT
  Age: 6 Year
  Sex: Male
  Weight: 21.15 kg

DRUGS (4)
  1. STRATTERA [Suspect]
     Active Substance: ATOMOXETINE HYDROCHLORIDE
     Indication: ANXIETY
     Dosage: ?          OTHER STRENGTH:MG;QUANTITY:1 CAPSULE(S);?
     Route: 048
     Dates: start: 20170609, end: 20170709
  2. MELATONIN [Concomitant]
     Active Substance: MELATONIN
  3. TENEX [Concomitant]
     Active Substance: GUANFACINE HYDROCHLORIDE
  4. STRATTERA [Suspect]
     Active Substance: ATOMOXETINE HYDROCHLORIDE
     Indication: ATTENTION DEFICIT/HYPERACTIVITY DISORDER
     Dosage: ?          OTHER STRENGTH:MG;QUANTITY:1 CAPSULE(S);?
     Route: 048
     Dates: start: 20170609, end: 20170709

REACTIONS (6)
  - Grunting [None]
  - Muscle tightness [None]
  - Suicidal ideation [None]
  - Aggression [None]
  - Screaming [None]
  - Homicidal ideation [None]

NARRATIVE: CASE EVENT DATE: 20170708
